FAERS Safety Report 9750943 (Version 1)
Quarter: 2013Q4

REPORT INFORMATION
  Report Type: Spontaneous
  Country: US (occurrence: US)
  Receive Date: 20131212
  Receipt Date: 20131212
  Transmission Date: 20140711
  Serious: No
  Sender: FDA-Public Use
  Company Number: US-TEVA-402338USA

PATIENT
  Age: 28 Year
  Sex: Female
  Weight: 79.49 kg

DRUGS (3)
  1. PARAGARD 380A [Suspect]
     Indication: CONTRACEPTION
     Route: 015
     Dates: start: 20130327, end: 20130425
  2. NEXIUM [Concomitant]
     Indication: GASTROOESOPHAGEAL REFLUX DISEASE
     Route: 048
  3. PRESTIQ [Concomitant]
     Indication: DEPRESSION
     Route: 048

REACTIONS (2)
  - Uterine spasm [Recovered/Resolved]
  - Device expulsion [Recovered/Resolved]
